FAERS Safety Report 7788108-4 (Version None)
Quarter: 2011Q3

REPORT INFORMATION
  Report Type: 
  Country: None (occurrence: None)
  Receive Date: 20110929
  Receipt Date: 20110929
  Transmission Date: 20111222
  Serious: Yes (Hospitalization)
  Sender: FDA-Public Use
  Company Number: None

PATIENT
  Sex: Male
  Weight: 66.9056 kg

DRUGS (3)
  1. MELOXICAM [Suspect]
     Indication: COSTOCHONDRITIS
     Dosage: ONE TABLET DAILY BY MOUTH
     Route: 048
     Dates: start: 20110823, end: 20110830
  2. LISINOPRIL AND HYDROCHLOROTHIAZIDE [Suspect]
     Indication: HYPERTENSION
     Dosage: ONE TABLET DAILY BY MOUTH
     Route: 048
     Dates: start: 20110823, end: 20110830
  3. ROBAXIN-750 [Suspect]
     Indication: COSTOCHONDRITIS
     Dosage: 2 TABLETS 4X DAILY X 2 DAYS BY MOUTH
     Route: 048
     Dates: start: 20110823, end: 20110830

REACTIONS (6)
  - DELUSION [None]
  - PSYCHOTIC DISORDER [None]
  - RENAL FAILURE ACUTE [None]
  - HYPERTENSION [None]
  - THROMBOCYTOPENIA [None]
  - RHABDOMYOLYSIS [None]
